FAERS Safety Report 10104239 (Version 2)
Quarter: 2014Q3

REPORT INFORMATION
  Report Type: Other
  Country: None (occurrence: US)
  Receive Date: 20140424
  Receipt Date: 20140722
  Transmission Date: 20150326
  Serious: Yes (Death, Other)
  Sender: FDA-Public Use
  Company Number: US-GSKPPD-2014GSK001358

PATIENT
  Age: 59 Year
  Sex: Female
  Weight: 113.95 kg

DRUGS (1)
  1. AVANDIA [Suspect]
     Active Substance: ROSIGLITAZONE MALEATE
     Indication: DIABETES MELLITUS
     Route: 048
     Dates: start: 2007

REACTIONS (3)
  - Myocardial infarction [None]
  - Cardiac arrest [Fatal]
  - Cardiac failure congestive [None]

NARRATIVE: CASE EVENT DATE: 20090524
